FAERS Safety Report 5618743-0 (Version None)
Quarter: 2008Q1

REPORT INFORMATION
  Report Type: 
  Country: None (occurrence: None)
  Receive Date: 20080207
  Receipt Date: 20080128
  Transmission Date: 20080703
  Serious: Yes (Life-Threatening, Hospitalization, Other)
  Sender: FDA-Public Use
  Company Number: US-ROCHE-392443

PATIENT
  Age: 62 Year
  Sex: Male
  Weight: 87 kg

DRUGS (35)
  1. MYCOPHENOLATE MOFETIL [Suspect]
     Route: 048
     Dates: start: 20050112
  2. MYCOPHENOLATE MOFETIL [Suspect]
     Route: 048
     Dates: start: 20050120, end: 20051101
  3. MYCOPHENOLATE MOFETIL [Suspect]
     Route: 048
     Dates: start: 20051108
  4. TACROLIMUS [Suspect]
     Route: 048
     Dates: start: 20050115
  5. TACROLIMUS [Suspect]
     Route: 048
  6. PREDNISONE TAB [Suspect]
     Route: 048
     Dates: start: 20050116
  7. PREDNISONE TAB [Suspect]
     Route: 048
     Dates: start: 20050416, end: 20050518
  8. PREDNISONE TAB [Suspect]
     Route: 048
     Dates: start: 20050520, end: 20050520
  9. PREDNISONE TAB [Suspect]
     Route: 048
     Dates: start: 20050521, end: 20050521
  10. PREDNISONE TAB [Suspect]
     Route: 048
     Dates: start: 20050522, end: 20050522
  11. PREDNISONE TAB [Suspect]
     Route: 048
     Dates: start: 20050523, end: 20050523
  12. PREDNISONE TAB [Suspect]
     Route: 048
     Dates: start: 20050524
  13. PREDNISONE TAB [Suspect]
     Dosage: DOSE DISCONTINUED.
     Route: 048
     Dates: start: 20051107, end: 20060306
  14. METHYLPREDNISOLONE [Suspect]
     Route: 042
     Dates: start: 20050111, end: 20050115
  15. THYMOGLOBULIN [Suspect]
     Dosage: REPORTED AS 3 TOTAL DOSES
     Route: 042
     Dates: start: 20050111, end: 20050115
  16. DAPSONE [Concomitant]
     Dates: start: 20050111
  17. MORPHINE [Concomitant]
     Dates: start: 20050111
  18. NYSTATIN [Concomitant]
     Dates: start: 20050111
  19. PANTOPRAZOLE [Concomitant]
     Dates: start: 20050111
  20. INSULIN GLARGINE [Concomitant]
     Dates: start: 20050116
  21. VALGANCICLOVIR HCL [Concomitant]
     Dates: start: 20050112, end: 20050810
  22. NIFEDIPINE [Concomitant]
     Dates: start: 20050115
  23. DOXAZOSIN [Concomitant]
     Dates: start: 20050118
  24. AVODART [Concomitant]
     Dates: start: 20050118
  25. INSULIN [Concomitant]
     Dosage: DOSAGE REPORTED AS VARIES AND SLIDING SCALE. DRUG REPORTED AS INSULIN NOVALOG.
     Dates: start: 20050115
  26. ASPIRIN [Concomitant]
     Dates: start: 20050118
  27. LIPITOR [Concomitant]
     Dates: start: 20050112, end: 20050920
  28. PROTONIX [Concomitant]
     Dates: start: 20050112
  29. ATENOLOL [Concomitant]
     Dates: start: 20050118
  30. VITAMINE D [Concomitant]
     Dates: start: 20050118
  31. ZETIA [Concomitant]
     Dates: start: 20050820
  32. FERROUS SULFATE TAB [Concomitant]
     Dates: start: 20051024
  33. KENALOG [Concomitant]
     Indication: APHTHOUS STOMATITIS
     Dosage: REPORTED AS KENALOG CREAM TO ULCERS.
     Route: 061
     Dates: start: 20051024, end: 20051103
  34. NPH ILETIN II [Concomitant]
     Dates: start: 20050115
  35. CALCIUM CARBONATE [Concomitant]
     Dates: start: 20050118

REACTIONS (3)
  - MYOCARDIAL INFARCTION [None]
  - NEPHRITIS INTERSTITIAL [None]
  - NEUTROPENIA [None]
